FAERS Safety Report 8728786 (Version 4)
Quarter: 2012Q4

REPORT INFORMATION
  Report Type: 
  Country: JP (occurrence: JP)
  Receive Date: 20120817
  Receipt Date: 20120921
  Transmission Date: 20130627
  Serious: Yes (Hospitalization, Other)
  Sender: FDA-Public Use
  Company Number: JP-BRISTOL-MYERS SQUIBB COMPANY-16859407

PATIENT
  Age: 60 Year
  Sex: Female
  Weight: 47 kg

DRUGS (3)
  1. ABILIFY TABS [Suspect]
     Indication: MANIA
     Dosage: Abilify tabs 12mg.
     Route: 048
     Dates: start: 20120619, end: 20120625
  2. LIMAS [Concomitant]
     Dosage: Tabs
     Dates: start: 20080528, end: 20120707
  3. AMLODIPINE [Concomitant]
     Dates: start: 20080620, end: 20120707

REACTIONS (9)
  - Blood creatine phosphokinase increased [Recovered/Resolved]
  - Stupor [Unknown]
  - Pyrexia [Unknown]
  - Bradykinesia [Unknown]
  - Muscle rigidity [Unknown]
  - Hyperhidrosis [Unknown]
  - Tremor [Unknown]
  - Dysphagia [Unknown]
  - Somnolence [Unknown]
